FAERS Safety Report 17916710 (Version 1)
Quarter: 2020Q2

REPORT INFORMATION
  Report Type: Spontaneous
  Country: US (occurrence: US)
  Receive Date: 20200619
  Receipt Date: 20200619
  Transmission Date: 20200714
  Serious: No
  Sender: FDA-Public Use
  Company Number: None

PATIENT
  Age: 55 Year
  Sex: Female
  Weight: 72 kg

DRUGS (1)
  1. HALDOL DECANOATE [Suspect]
     Active Substance: HALOPERIDOL DECANOATE
     Indication: BIPOLAR DISORDER
     Dosage: ?          QUANTITY:1 INJECTION(S);OTHER FREQUENCY:EVERY 2 WEEKS.;?
     Route: 030
     Dates: start: 20190401, end: 20200619

REACTIONS (5)
  - Heart rate increased [None]
  - Angina pectoris [None]
  - Incorrect dose administered [None]
  - Memory impairment [None]
  - Hypoaesthesia [None]

NARRATIVE: CASE EVENT DATE: 20200219
